FAERS Safety Report 10715353 (Version 1)
Quarter: 2015Q1

REPORT INFORMATION
  Report Type: Spontaneous
  Country: US (occurrence: US)
  Receive Date: 20150116
  Receipt Date: 20150116
  Transmission Date: 20150721
  Serious: Yes (Other)
  Sender: FDA-Public Use
  Company Number: US-PFIZER INC-2015014680

PATIENT
  Sex: Male

DRUGS (1)
  1. VIAGRA [Suspect]
     Active Substance: SILDENAFIL CITRATE
     Dosage: UNK, ALTERNATE DAY

REACTIONS (4)
  - Vitreous floaters [Unknown]
  - Visual impairment [Unknown]
  - Photopsia [Unknown]
  - Retinal tear [Unknown]
